FAERS Safety Report 5776844-0 (Version None)
Quarter: 2008Q2

REPORT INFORMATION
  Report Type: 
  Country: None (occurrence: None)
  Receive Date: 20080618
  Receipt Date: 20080612
  Transmission Date: 20081010
  Serious: Yes (Hospitalization, Other)
  Sender: FDA-Public Use
  Company Number: US-WATSON-2008-03592

PATIENT
  Age: 39 Year
  Sex: Female

DRUGS (2)
  1. OXYCODONE HYDROCHLORIDE AND ACETAMINOPHEN [Suspect]
     Indication: ANALGESIA
     Dosage: UNK
     Route: 048
     Dates: start: 19960101
  2. FIORICET W/ CODEINE [Suspect]
     Indication: ANALGESIA
     Dosage: 10 TABLETS, DAILY FOR THE PAST YEAR
     Route: 048

REACTIONS (3)
  - DRUG DIVERSION [None]
  - DRUG WITHDRAWAL SYNDROME [None]
  - OVERDOSE [None]
